FAERS Safety Report 8545317-4 (Version None)
Quarter: 2012Q3

REPORT INFORMATION
  Report Type: 
  Country: None (occurrence: None)
  Receive Date: 20120719
  Receipt Date: 20120719
  Transmission Date: 20120928
  Serious: Yes (Hospitalization)
  Sender: FDA-Public Use
  Company Number: None

PATIENT
  Sex: Male
  Weight: 130.9 kg

DRUGS (5)
  1. ERBITUX [Suspect]
     Dosage: 978 MG THEN 610 MG
     Dates: start: 20120625
  2. ERBITUX [Suspect]
     Dosage: 978 MG THEN 610 MG
     Dates: start: 20120709
  3. ERBITUX [Suspect]
     Dosage: 978 MG THEN 610 MG
     Dates: start: 20120716
  4. ERBITUX [Suspect]
     Dosage: 978 MG THEN 610 MG
     Dates: start: 20120702
  5. ERBITUX [Suspect]
     Dosage: 978 MG THEN 610 MG
     Dates: start: 20120618

REACTIONS (1)
  - DYSPHAGIA [None]
